FAERS Safety Report 9676484 (Version 3)
Quarter: 2013Q4

REPORT INFORMATION
  Report Type: Spontaneous
  Country: US (occurrence: US)
  Receive Date: 20131107
  Receipt Date: 20131231
  Transmission Date: 20140711
  Serious: Yes (Other)
  Sender: FDA-Public Use
  Company Number: US-PFIZER INC-2013318225

PATIENT
  Age: 53 Year
  Sex: Female
  Weight: 86.17 kg

DRUGS (8)
  1. LYRICA [Suspect]
     Indication: FIBROMYALGIA
     Dosage: 150 MG, 2X/DAY
     Route: 048
     Dates: end: 20131130
  2. LAMICTAL [Suspect]
     Indication: CONVULSION
     Dosage: 150 MG, 2X/DAY
  3. CYMBALTA [Concomitant]
     Indication: ANXIETY
     Dosage: 60 MG, 1X/DAY
  4. CYMBALTA [Concomitant]
     Indication: DEPRESSION
  5. METHOTREXATE [Concomitant]
     Indication: RHEUMATOID ARTHRITIS
     Dosage: UNK
  6. ALEVE [Concomitant]
     Indication: PAIN
     Dosage: 220 MG, 2X/DAY
  7. COLACE [Concomitant]
     Indication: IRRITABLE BOWEL SYNDROME
     Dosage: UNK
  8. LIDODERM [Concomitant]
     Indication: PAIN
     Dosage: UNK

REACTIONS (2)
  - Grand mal convulsion [Unknown]
  - Malaise [Unknown]
